FAERS Safety Report 20728468 (Version 2)
Quarter: 2022Q2

REPORT INFORMATION
  Report Type: Spontaneous
  Country: JP (occurrence: JP)
  Receive Date: 20220420
  Receipt Date: 20220421
  Transmission Date: 20220721
  Serious: Yes (Hospitalization, Other)
  Sender: FDA-Public Use
  Company Number: JP-MSD-2202JPN003777J

PATIENT
  Age: 77 Year
  Sex: Female

DRUGS (4)
  1. KEYTRUDA [Suspect]
     Active Substance: PEMBROLIZUMAB
     Indication: Uterine cancer
     Dosage: 200 MILLIGRAM, Q3W
     Route: 041
     Dates: start: 20220128
  2. LENVIMA [Suspect]
     Active Substance: LENVATINIB
     Indication: Uterine cancer
     Dosage: 20 MILLIGRAM, QD
     Route: 048
     Dates: start: 20220128, end: 2022
  3. LENVIMA [Suspect]
     Active Substance: LENVATINIB
     Dosage: 20 MILLIGRAM, QOD
     Route: 048
     Dates: start: 202203, end: 202203
  4. LENVIMA [Suspect]
     Active Substance: LENVATINIB
     Dosage: 10 MILLIGRAM, QD
     Route: 048
     Dates: start: 20220304

REACTIONS (6)
  - Decreased appetite [Recovering/Resolving]
  - Platelet count decreased [Recovering/Resolving]
  - Adrenal insufficiency [Unknown]
  - Hypertension [Recovering/Resolving]
  - Weight decreased [Recovering/Resolving]
  - Taste disorder [Unknown]

NARRATIVE: CASE EVENT DATE: 20220202
